FAERS Safety Report 9804215 (Version 2)
Quarter: 2014Q1

REPORT INFORMATION
  Report Type: Spontaneous
  Country: US (occurrence: US)
  Receive Date: 20140108
  Receipt Date: 20140108
  Transmission Date: 20141002
  Serious: Yes (Hospitalization)
  Sender: FDA-Public Use
  Company Number: US-ASTRAZENECA-2012SE02256

PATIENT
  Age: 58 Year
  Sex: Female
  Weight: 108.9 kg

DRUGS (6)
  1. CRESTOR [Suspect]
     Indication: BLOOD CHOLESTEROL ABNORMAL
     Route: 048
     Dates: end: 2012
  2. LISINOPRIL [Suspect]
     Indication: ANGINA PECTORIS
     Route: 048
     Dates: start: 2010
  3. NITROGLYCERIN [Concomitant]
     Indication: ANGINA PECTORIS
     Dosage: UNKNOWN PRN
     Dates: start: 2010
  4. METOPROLOL TARTRATE [Concomitant]
     Dates: start: 2010
  5. METFORMIN [Concomitant]
     Indication: DIABETES MELLITUS
     Dates: end: 201312
  6. METFORMIN [Concomitant]
     Indication: DIABETES MELLITUS
     Dates: start: 201312

REACTIONS (5)
  - Angina pectoris [Unknown]
  - Insulin-requiring type 2 diabetes mellitus [Unknown]
  - Blood glucose increased [Unknown]
  - Feeling abnormal [Unknown]
  - Intentional drug misuse [Unknown]
